FAERS Safety Report 7821609-9 (Version None)
Quarter: 2011Q4

REPORT INFORMATION
  Report Type: 
  Country: None (occurrence: None)
  Receive Date: 20111018
  Receipt Date: 20110715
  Transmission Date: 20120403
  Serious: No
  Sender: FDA-Public Use
  Company Number: US-ASTRAZENECA-2011SE42951

PATIENT
  Age: 51 Year
  Sex: Female

DRUGS (10)
  1. NEBULIZER ACCESSORIES [Concomitant]
     Dosage: 1 USE AS DIRECTED
     Dates: start: 20080114
  2. ALBUTEROL [Concomitant]
     Indication: COUGH
     Dosage: 1 EVERY FOUR HOURS AS NEEDED
     Dates: start: 20091113
  3. ALBUTEROL [Concomitant]
     Indication: WHEEZING
     Dosage: 1 EVERY FOUR HOURS AS NEEDED
     Dates: start: 20091113
  4. MELOXICAM [Concomitant]
     Dates: start: 20110624
  5. BENICAR [Concomitant]
     Dates: start: 20090908
  6. NEXIUM [Suspect]
     Route: 048
     Dates: start: 20110314
  7. FLEXERIL [Concomitant]
     Dates: start: 20100715
  8. VICODIN [Concomitant]
     Indication: PAIN
     Dosage: 5-500 MG 1 TABLET EVERY 8 HOURS AS NEEDED
     Dates: start: 20110624
  9. PROVENTIL [Concomitant]
     Dosage: 1-2 PUFFS EVERY 4 HOURS AS NEEDED
     Dates: start: 20110511
  10. SYMBICORT [Suspect]
     Dosage: 80/4.5 MCG 1-2 PUFFS TWICE A DAY
     Route: 055
     Dates: start: 20100520

REACTIONS (3)
  - PAIN [None]
  - CARPAL TUNNEL SYNDROME [None]
  - COUGH [None]
